FAERS Safety Report 4974151-7 (Version None)
Quarter: 2006Q2

REPORT INFORMATION
  Report Type: 
  Country: None (occurrence: None)
  Receive Date: 20060417
  Receipt Date: 20040811
  Transmission Date: 20061013
  Serious: Yes (Hospitalization)
  Sender: FDA-Public Use
  Company Number: US-MERCK-0408USA00966

PATIENT
  Age: 30 Year
  Sex: Female
  Weight: 82 kg

DRUGS (4)
  1. VIOXX [Suspect]
     Indication: ARTHRALGIA
     Route: 048
     Dates: start: 20020802, end: 20020807
  2. OVCON-35 [Concomitant]
     Route: 065
     Dates: start: 20040101
  3. IBUPROFEN [Concomitant]
     Indication: ANALGESIC EFFECT
     Route: 065
     Dates: start: 20020601
  4. AMITRIPTYLINE HYDROCHLORIDE [Concomitant]
     Indication: DEPRESSION
     Route: 065

REACTIONS (35)
  - ABDOMINAL PAIN [None]
  - ACUTE CORONARY SYNDROME [None]
  - ANXIETY [None]
  - ARTERIAL THROMBOSIS [None]
  - ASTHENIA [None]
  - BRONCHITIS ACUTE [None]
  - CHEST DISCOMFORT [None]
  - CHEST PAIN [None]
  - CONSTIPATION [None]
  - CORONARY ARTERY OCCLUSION [None]
  - DIABETES MELLITUS [None]
  - DIARRHOEA [None]
  - DIZZINESS [None]
  - EJECTION FRACTION DECREASED [None]
  - ELECTROCARDIOGRAM CHANGE [None]
  - FATIGUE [None]
  - GASTROOESOPHAGEAL REFLUX DISEASE [None]
  - HELICOBACTER INFECTION [None]
  - HERPES ZOSTER [None]
  - HYPERHIDROSIS [None]
  - HYPERLIPIDAEMIA [None]
  - HYPERSENSITIVITY [None]
  - LIMB DISCOMFORT [None]
  - MALAISE [None]
  - MYOCARDIAL INFARCTION [None]
  - NAUSEA [None]
  - PAIN IN EXTREMITY [None]
  - PALPITATIONS [None]
  - PANIC ATTACK [None]
  - PARAESTHESIA [None]
  - PROTEIN S DEFICIENCY [None]
  - RASH [None]
  - SINUSITIS [None]
  - SWEAT GLAND INFECTION [None]
  - VOMITING [None]
